FAERS Safety Report 5102900-6 (Version None)
Quarter: 2006Q3

REPORT INFORMATION
  Report Type: 
  Country: None (occurrence: None)
  Receive Date: 20060908
  Receipt Date: 20060823
  Transmission Date: 20061208
  Serious: Yes (Hospitalization, Other)
  Sender: FDA-Public Use
  Company Number: US-2005-028045

PATIENT
  Age: 62 Year
  Sex: Female
  Weight: 86 kg

DRUGS (6)
  1. BETASERON [Suspect]
     Indication: RELAPSING-REMITTING MULTIPLE SCLEROSIS
     Dosage: SEE IMAGE
     Route: 058
     Dates: start: 20021016
  2. BETASERON [Suspect]
     Indication: RELAPSING-REMITTING MULTIPLE SCLEROSIS
     Dosage: SEE IMAGE
     Route: 058
     Dates: start: 20050901
  3. BACLOFEN [Concomitant]
  4. ZOCOR [Concomitant]
  5. PAXIL [Concomitant]
  6. LASIX [Concomitant]

REACTIONS (21)
  - ANXIETY [None]
  - B-CELL LYMPHOMA [None]
  - BEDRIDDEN [None]
  - BILIARY TRACT INFECTION [None]
  - BLOOD CHOLESTEROL INCREASED [None]
  - BLOOD MAGNESIUM DECREASED [None]
  - CHEST DISCOMFORT [None]
  - COUGH [None]
  - DIABETES MELLITUS NON-INSULIN-DEPENDENT [None]
  - DYSLIPIDAEMIA [None]
  - FEBRILE CONVULSION [None]
  - HYPERLIPIDAEMIA [None]
  - HYPERTENSION [None]
  - JOINT SWELLING [None]
  - LOW DENSITY LIPOPROTEIN INCREASED [None]
  - MOBILITY DECREASED [None]
  - OEDEMA PERIPHERAL [None]
  - PAIN IN EXTREMITY [None]
  - PANCREATIC DISORDER [None]
  - STRESS [None]
  - VENTRICULAR HYPOKINESIA [None]
